FAERS Safety Report 4625988-5 (Version None)
Quarter: 2005Q2

REPORT INFORMATION
  Report Type: 
  Country: None (occurrence: None)
  Receive Date: 20050404
  Receipt Date: 20050322
  Transmission Date: 20051028
  Serious: Yes (Other)
  Sender: FDA-Public Use
  Company Number: DE-JNJFOC-20050305542

PATIENT
  Sex: Male
  Weight: 47.3 kg

DRUGS (3)
  1. TOPAMAX [Suspect]
     Indication: EPILEPSY
     Route: 049
  2. ERGENYL CHRONO [Concomitant]
     Route: 049
  3. ERGENYL CHRONO [Concomitant]
     Indication: EPILEPSY
     Route: 049

REACTIONS (2)
  - HYDRONEPHROSIS [None]
  - NEPHROLITHIASIS [None]
